FAERS Safety Report 9146434 (Version 1)
Quarter: 2013Q1

REPORT INFORMATION
  Report Type: Spontaneous
  Country: US (occurrence: None)
  Receive Date: 20130227
  Receipt Date: 20130227
  Transmission Date: 20140127
  Serious: Yes (Hospitalization)
  Sender: FDA-Public Use
  Company Number: None

PATIENT
  Age: 79 Year
  Sex: Female

DRUGS (1)
  1. ADCIRCA [Suspect]
     Dosage: 40 MG DAILY ORAL
     Route: 048
     Dates: start: 20120510

REACTIONS (4)
  - Haematoma [None]
  - Fall [None]
  - Facial bones fracture [None]
  - Carotid artery occlusion [None]
